FAERS Safety Report 21406559 (Version 1)
Quarter: 2022Q4

REPORT INFORMATION
  Report Type: Spontaneous
  Country: GB (occurrence: GB)
  Receive Date: 20221004
  Receipt Date: 20221004
  Transmission Date: 20230112
  Serious: Yes (Other)
  Sender: FDA-Public Use
  Company Number: GB-UCBSA-2022057799

PATIENT
  Age: 56 Year
  Sex: Female

DRUGS (2)
  1. KEPPRA [Suspect]
     Active Substance: LEVETIRACETAM
     Indication: Product used for unknown indication
     Dosage: WAS TAKING MAX 3G
  2. KEPPRA [Suspect]
     Active Substance: LEVETIRACETAM
     Dosage: 1750 MILLIGRAM, 2X/DAY (BID)
     Dates: start: 202209

REACTIONS (8)
  - Seizure [Unknown]
  - Generalised tonic-clonic seizure [Unknown]
  - Tooth loss [Unknown]
  - Muscle spasms [Unknown]
  - Finger deformity [Unknown]
  - Pain in extremity [Unknown]
  - Somnambulism [Unknown]
  - Overdose [Unknown]

NARRATIVE: CASE EVENT DATE: 20220901
